FAERS Safety Report 19579922 (Version 1)
Quarter: 2021Q3

REPORT INFORMATION
  Report Type: Spontaneous
  Country: FR (occurrence: FR)
  Receive Date: 20210720
  Receipt Date: 20210720
  Transmission Date: 20211014
  Serious: Yes (Hospitalization)
  Sender: FDA-Public Use
  Company Number: FR-AUROBINDO-AUR-APL-2021-030043

PATIENT
  Age: 24 Year
  Sex: Female
  Weight: 58 kg

DRUGS (3)
  1. VENLAFAXINE [Concomitant]
     Active Substance: VENLAFAXINE HYDROCHLORIDE
     Indication: PRODUCT USED FOR UNKNOWN INDICATION
     Dosage: UNK
     Route: 065
  2. PAROXETINE ARROW 20 MG FILM?COATED TABLETS [Suspect]
     Active Substance: PAROXETINE
     Indication: ANXIETY
     Dosage: UNK (1/2 TABLET PER DAY)
     Route: 048
     Dates: start: 20210410, end: 20210428
  3. THYROFIX [Concomitant]
     Active Substance: LEVOTHYROXINE SODIUM
     Indication: PRODUCT USED FOR UNKNOWN INDICATION
     Dosage: UNK
     Route: 065

REACTIONS (1)
  - Mania [Recovering/Resolving]

NARRATIVE: CASE EVENT DATE: 20210429
